FAERS Safety Report 5198446-X (Version None)
Quarter: 2006Q4

REPORT INFORMATION
  Report Type: 
  Country: None (occurrence: None)
  Receive Date: 20061229
  Receipt Date: 20061229
  Transmission Date: 20070319
  Serious: Yes (Other)
  Sender: FDA-Public Use
  Company Number: None

PATIENT
  Sex: Female
  Weight: 95.2554 kg

DRUGS (1)
  1. CRESTOR [Suspect]
     Indication: BLOOD CHOLESTEROL INCREASED
     Dosage: 1 TABLET 1 TABLET IN P.M.
     Dates: start: 20030807, end: 20060831

REACTIONS (2)
  - MYALGIA [None]
  - SIMILAR REACTION ON PREVIOUS EXPOSURE TO DRUG [None]
